FAERS Safety Report 5942058-4 (Version None)
Quarter: 2008Q4

REPORT INFORMATION
  Report Type: 
  Country: None (occurrence: None)
  Receive Date: 20081105
  Receipt Date: 20081031
  Transmission Date: 20090506
  Serious: Yes (Other)
  Sender: FDA-Public Use
  Company Number: A0754087A

PATIENT
  Age: 63 Year
  Sex: Male

DRUGS (4)
  1. REQUIP [Suspect]
     Indication: PARKINSON'S DISEASE
     Route: 048
     Dates: start: 20070101
  2. METFORMIN HCL [Concomitant]
  3. ACTOS [Concomitant]
  4. JANUVIA [Concomitant]

REACTIONS (7)
  - ABASIA [None]
  - ASTHENIA [None]
  - BLINDNESS TRANSIENT [None]
  - HYPERHIDROSIS [None]
  - LETHARGY [None]
  - NAUSEA [None]
  - SKIN DISCOLOURATION [None]
